FAERS Safety Report 25242795 (Version 1)
Quarter: 2025Q2

REPORT INFORMATION
  Report Type: Spontaneous
  Country: CN (occurrence: CN)
  Receive Date: 20250427
  Receipt Date: 20250427
  Transmission Date: 20250717
  Serious: Yes (Other)
  Sender: BEIGENE
  Company Number: CN-BEIGENE-BGN-2025-006329

PATIENT
  Age: 59 Year

DRUGS (24)
  1. TISLELIZUMAB [Suspect]
     Active Substance: TISLELIZUMAB
     Indication: Small cell lung cancer
     Route: 041
  2. TISLELIZUMAB [Suspect]
     Active Substance: TISLELIZUMAB
  3. TISLELIZUMAB [Suspect]
     Active Substance: TISLELIZUMAB
  4. TISLELIZUMAB [Suspect]
     Active Substance: TISLELIZUMAB
     Route: 041
  5. TISLELIZUMAB [Suspect]
     Active Substance: TISLELIZUMAB
     Route: 041
  6. TISLELIZUMAB [Suspect]
     Active Substance: TISLELIZUMAB
  7. TISLELIZUMAB [Suspect]
     Active Substance: TISLELIZUMAB
  8. TISLELIZUMAB [Suspect]
     Active Substance: TISLELIZUMAB
     Route: 041
  9. ETOPOSIDE [Suspect]
     Active Substance: ETOPOSIDE
     Indication: Small cell lung cancer
     Route: 041
  10. ETOPOSIDE [Suspect]
     Active Substance: ETOPOSIDE
  11. ETOPOSIDE [Suspect]
     Active Substance: ETOPOSIDE
  12. ETOPOSIDE [Suspect]
     Active Substance: ETOPOSIDE
     Route: 041
  13. ETOPOSIDE [Suspect]
     Active Substance: ETOPOSIDE
     Route: 041
  14. ETOPOSIDE [Suspect]
     Active Substance: ETOPOSIDE
  15. ETOPOSIDE [Suspect]
     Active Substance: ETOPOSIDE
  16. ETOPOSIDE [Suspect]
     Active Substance: ETOPOSIDE
     Route: 041
  17. CARBOPLATIN [Suspect]
     Active Substance: CARBOPLATIN
     Indication: Small cell lung cancer
     Route: 041
  18. CARBOPLATIN [Suspect]
     Active Substance: CARBOPLATIN
  19. CARBOPLATIN [Suspect]
     Active Substance: CARBOPLATIN
  20. CARBOPLATIN [Suspect]
     Active Substance: CARBOPLATIN
     Route: 041
  21. CARBOPLATIN [Suspect]
     Active Substance: CARBOPLATIN
     Route: 041
  22. CARBOPLATIN [Suspect]
     Active Substance: CARBOPLATIN
  23. CARBOPLATIN [Suspect]
     Active Substance: CARBOPLATIN
  24. CARBOPLATIN [Suspect]
     Active Substance: CARBOPLATIN
     Route: 041

REACTIONS (1)
  - Transaminases increased [Recovering/Resolving]
